FAERS Safety Report 8602140-X (Version None)
Quarter: 2012Q3

REPORT INFORMATION
  Report Type: 
  Country: None (occurrence: None)
  Receive Date: 20120817
  Receipt Date: 20120809
  Transmission Date: 20120928
  Serious: Yes (Hospitalization)
  Sender: FDA-Public Use
  Company Number: DE-NOVOPROD-356248

PATIENT
  Age: 31 Year
  Sex: Female
  Weight: 106.2 kg

DRUGS (1)
  1. VICTOZA [Suspect]
     Indication: OBESITY
     Dosage: 0.6 MG, QD
     Route: 058
     Dates: start: 20110907

REACTIONS (1)
  - CHOLELITHIASIS [None]
